FAERS Safety Report 16795048 (Version 1)
Quarter: 2019Q4

REPORT INFORMATION
  Report Type: Spontaneous
  Country: US (occurrence: US)
  Receive Date: 20190910
  Receipt Date: 20190910
  Transmission Date: 20200122
  Serious: Yes (Hospitalization, Disabling)
  Sender: FDA-Public Use
  Company Number: None

PATIENT
  Age: 60 Year
  Sex: Male
  Weight: 67 kg

DRUGS (1)
  1. IMBRUVICA [Suspect]
     Active Substance: IBRUTINIB
     Indication: CHRONIC LYMPHOCYTIC LEUKAEMIA
     Route: 048

REACTIONS (7)
  - Panophthalmitis [None]
  - Therapy non-responder [None]
  - Staphylococcus test positive [None]
  - Keratitis [None]
  - Optic disc drusen [None]
  - Choroidal haemorrhage [None]
  - Scleromalacia [None]

NARRATIVE: CASE EVENT DATE: 20190612
